FAERS Safety Report 8071983-6 (Version None)
Quarter: 2012Q1

REPORT INFORMATION
  Report Type: 
  Country: None (occurrence: None)
  Receive Date: 20120119
  Receipt Date: 20120104
  Transmission Date: 20120608
  Serious: Yes (Other)
  Sender: FDA-Public Use
  Company Number: AUR-APL-2012-00466

PATIENT
  Age: 21 Year
  Sex: Male

DRUGS (2)
  1. PAROXETINE HCL [Suspect]
     Indication: DEPRESSION
     Dosage: (20 MG, 1 D)
  2. TRIMIPRAMINE MALEATE [Suspect]
     Indication: DEPRESSION
     Dosage: (40 MG, 1 D)

REACTIONS (3)
  - EJACULATION FAILURE [None]
  - THERAPEUTIC RESPONSE DECREASED [None]
  - SEDATION [None]
